FAERS Safety Report 15329418 (Version 2)
Quarter: 2018Q3

REPORT INFORMATION
  Report Type: Spontaneous
  Country: US (occurrence: US)
  Receive Date: 20180829
  Receipt Date: 20180929
  Transmission Date: 20181010
  Serious: Yes (Death, Other)
  Sender: FDA-Public Use
  Company Number: US-AUROBINDO-AUR-APL-2018-043802

PATIENT
  Age: 41 Year

DRUGS (3)
  1. PHENYTOIN. [Suspect]
     Active Substance: PHENYTOIN
     Indication: PARTIAL SEIZURES
     Route: 065
  2. LEVETIRACETAM. [Suspect]
     Active Substance: LEVETIRACETAM
     Indication: PARTIAL SEIZURES
  3. LACOSAMIDE. [Suspect]
     Active Substance: LACOSAMIDE
     Indication: PARTIAL SEIZURES

REACTIONS (8)
  - Meningitis [Fatal]
  - Sudden unexplained death in epilepsy [Fatal]
  - Gliosis [Fatal]
  - Seizure [Unknown]
  - Fibrosis [Fatal]
  - Cerebellar atrophy [Fatal]
  - Arteriosclerosis coronary artery [Fatal]
  - Treatment noncompliance [Unknown]
